FAERS Safety Report 18959978 (Version 1)
Quarter: 2021Q1

REPORT INFORMATION
  Report Type: Spontaneous
  Country: US (occurrence: US)
  Receive Date: 20210302
  Receipt Date: 20210302
  Transmission Date: 20210420
  Serious: Yes (Hospitalization, Other)
  Sender: FDA-Public Use
  Company Number: US-IBSA PHARMA INC.-2021IBS000032

PATIENT
  Age: 62 Year
  Sex: Female

DRUGS (1)
  1. LEVOTHYROXINE SODIUM. [Suspect]
     Active Substance: LEVOTHYROXINE SODIUM
     Indication: PRODUCT USED FOR UNKNOWN INDICATION
     Dosage: DOUBLE THE DOSE FOR THE LAST THREE WEEKS PRIOR TO ADMISSION
     Route: 065

REACTIONS (4)
  - Tachycardia [Recovering/Resolving]
  - Acute coronary syndrome [Recovering/Resolving]
  - Hyperthyroidism [Recovering/Resolving]
  - Overdose [Unknown]
